FAERS Safety Report 8587609-9 (Version None)
Quarter: 2012Q3

REPORT INFORMATION
  Report Type: 
  Country: None (occurrence: None)
  Receive Date: 20120811
  Receipt Date: 20120807
  Transmission Date: 20120928
  Serious: No
  Sender: FDA-Public Use
  Company Number: US-009507513-1208USA003360

PATIENT

DRUGS (4)
  1. SAPHRIS [Suspect]
     Indication: PSYCHOTIC DISORDER
     Dosage: 10 MG, BID
     Route: 060
  2. SAPHRIS [Suspect]
     Indication: BIPOLAR DISORDER
  3. LITHIUM CARBONATE [Concomitant]
  4. LAMICTAL [Concomitant]

REACTIONS (1)
  - SWOLLEN TONGUE [None]
